FAERS Safety Report 8245014-9 (Version None)
Quarter: 2012Q1

REPORT INFORMATION
  Report Type: 
  Country: None (occurrence: None)
  Receive Date: 20120329
  Receipt Date: 20120322
  Transmission Date: 20120608
  Serious: Yes (Other)
  Sender: FDA-Public Use
  Company Number: US-US-EMD SERONO, INC.-7121293

PATIENT
  Sex: Female

DRUGS (2)
  1. REBIF [Suspect]
     Indication: PRODUCT USED FOR UNKNOWN INDICATION
     Route: 058
     Dates: start: 20060318, end: 20110101
  2. REBIF [Suspect]
     Route: 058
     Dates: start: 20110101

REACTIONS (7)
  - PULMONARY EMBOLISM [None]
  - HYPERCOAGULATION [None]
  - RIB FRACTURE [None]
  - FEELING ABNORMAL [None]
  - FALL [None]
  - CHILLS [None]
  - INJECTION SITE PAIN [None]
